FAERS Safety Report 5485363-0 (Version None)
Quarter: 2007Q4

REPORT INFORMATION
  Report Type: 
  Country: None (occurrence: None)
  Receive Date: 20071015
  Receipt Date: 20071001
  Transmission Date: 20080405
  Serious: Yes (Other)
  Sender: FDA-Public Use
  Company Number: CH-BRISTOL-MYERS SQUIBB COMPANY-13924873

PATIENT
  Age: 28 Year
  Sex: Male

DRUGS (15)
  1. CISPLATIN [Suspect]
     Indication: DIFFUSE LARGE B-CELL LYMPHOMA
  2. METHOTREXATE [Suspect]
     Indication: DIFFUSE LARGE B-CELL LYMPHOMA
  3. CYCLOPHOSPHAMIDE [Suspect]
     Indication: DIFFUSE LARGE B-CELL LYMPHOMA
  4. ETOPOSIDE [Suspect]
     Indication: DIFFUSE LARGE B-CELL LYMPHOMA
  5. VINCRISTINE SULFATE [Suspect]
     Indication: DIFFUSE LARGE B-CELL LYMPHOMA
  6. CARMUSTINE [Suspect]
     Indication: DIFFUSE LARGE B-CELL LYMPHOMA
  7. DOXORUBICIN HCL [Suspect]
     Indication: DIFFUSE LARGE B-CELL LYMPHOMA
  8. CICLOSPORIN [Suspect]
     Indication: DIFFUSE LARGE B-CELL LYMPHOMA
  9. CYTARABINE [Suspect]
     Indication: DIFFUSE LARGE B-CELL LYMPHOMA
  10. MELPHALAN [Suspect]
     Indication: DIFFUSE LARGE B-CELL LYMPHOMA
  11. METHYLPREDNISOLONE [Suspect]
     Indication: DIFFUSE LARGE B-CELL LYMPHOMA
  12. PREDNISONE [Suspect]
     Indication: DIFFUSE LARGE B-CELL LYMPHOMA
  13. RITUXIMAB [Suspect]
     Indication: DIFFUSE LARGE B-CELL LYMPHOMA
     Dosage: POSTOPERATIVELY IN 4 WEEKLY DOSES.
  14. FLUDARABINE PHOSPHATE [Suspect]
     Indication: DIFFUSE LARGE B-CELL LYMPHOMA
  15. RADIOTHERAPY [Suspect]
     Indication: DIFFUSE LARGE B-CELL LYMPHOMA

REACTIONS (8)
  - APLASIA [None]
  - ARTHRITIS BACTERIAL [None]
  - CYTOMEGALOVIRUS INFECTION [None]
  - GRAFT VERSUS HOST DISEASE [None]
  - HYPOGAMMAGLOBULINAEMIA [None]
  - MALIGNANT NEOPLASM PROGRESSION [None]
  - PNEUMONITIS [None]
  - RENAL FAILURE ACUTE [None]
